FAERS Safety Report 12443746 (Version 1)
Quarter: 2016Q2

REPORT INFORMATION
  Report Type: Spontaneous
  Country: TR (occurrence: TR)
  Receive Date: 20160607
  Receipt Date: 20160607
  Transmission Date: 20160815
  Serious: Yes (Death)
  Sender: FDA-Public Use
  Company Number: TR-OTSUKA-2016_012542

PATIENT
  Age: 74 Year
  Sex: Male

DRUGS (1)
  1. DACOGEN [Suspect]
     Active Substance: DECITABINE
     Indication: ACUTE MYELOID LEUKAEMIA
     Dosage: 20 MG/M2, UNK
     Route: 042
     Dates: start: 201509

REACTIONS (1)
  - Cardiac disorder [Fatal]
